FAERS Safety Report 8947232 (Version 4)
Quarter: 2013Q1

REPORT INFORMATION
  Report Type: Spontaneous
  Country: US (occurrence: US)
  Receive Date: 20121205
  Receipt Date: 20130312
  Transmission Date: 20140127
  Serious: Yes (Hospitalization, Other)
  Sender: FDA-Public Use
  Company Number: US-JNJFOC-20121114920

PATIENT
  Sex: Female
  Weight: 72.6 kg

DRUGS (5)
  1. DOXORUBICIN HYDROCHLORIDE (DOXIL) [Suspect]
     Indication: OVARIAN EPITHELIAL CANCER
     Dosage: IN FIRST CYCLE THE PLD WAS ADMINISTERED AS A SINGLE AGENT.
     Route: 042
  2. AVASTIN [Suspect]
     Indication: OVARIAN EPITHELIAL CANCER
     Dosage: (BEGINNING ON CYCLE 2) EVERY 3 WEEKS
     Route: 065
  3. CARBAMAZEPINE [Concomitant]
     Indication: BIPOLAR DISORDER
     Route: 065
  4. ALPRAZOLAM [Concomitant]
     Indication: BIPOLAR DISORDER
     Route: 065
  5. XANAX [Concomitant]
     Indication: BIPOLAR DISORDER
     Route: 065

REACTIONS (12)
  - Malignant hypertension [Recovered/Resolved]
  - Disease progression [Unknown]
  - Thrombotic thrombocytopenic purpura [Unknown]
  - Nephrotic syndrome [Unknown]
  - Haemolytic uraemic syndrome [Recovered/Resolved with Sequelae]
  - Neutropenia [Recovered/Resolved]
  - Anaemia [Unknown]
  - Thrombocytopenia [Recovered/Resolved]
  - Blood creatinine increased [Recovered/Resolved]
  - Blood lactate dehydrogenase increased [Recovered/Resolved]
  - Pyrexia [Recovered/Resolved]
  - Headache [Recovered/Resolved]
